FAERS Safety Report 6369151-9 (Version None)
Quarter: 2009Q3

REPORT INFORMATION
  Report Type: 
  Country: None (occurrence: None)
  Receive Date: 20090918
  Receipt Date: 20090918
  Transmission Date: 20100115
  Serious: Yes (Other)
  Sender: FDA-Public Use
  Company Number: None

PATIENT
  Age: 42 Year
  Sex: Female
  Weight: 47.7 kg

DRUGS (2)
  1. CREST PRO-HEALTH TOOTHPASTE PROCTOR + GAMBLE [Suspect]
     Indication: DENTAL DISORDER PROPHYLAXIS
     Dosage: ONE INCH TWICE/DAY ORAL
     Route: 048
     Dates: start: 20090724, end: 20090731
  2. CREST PRO-HEALTH ORAL RINSE PROCTOR + GAMBLE [Suspect]
     Indication: DENTAL DISORDER PROPHYLAXIS
     Dosage: 4 TEASPONS TWICE/DAY ORAL
     Route: 048
     Dates: start: 20090821, end: 20090827

REACTIONS (6)
  - AGEUSIA [None]
  - GINGIVAL PAIN [None]
  - GINGIVAL RECESSION [None]
  - ORAL DISORDER [None]
  - TONGUE DISCOLOURATION [None]
  - TOOTHACHE [None]
